FAERS Safety Report 19725899 (Version 1)
Quarter: 2021Q3

REPORT INFORMATION
  Report Type: Spontaneous
  Country: US (occurrence: US)
  Receive Date: 20210819
  Receipt Date: 20210819
  Transmission Date: 20211014
  Serious: Yes (Other)
  Sender: FDA-Public Use
  Company Number: US-MANNKIND CORPORATION-2020MK000129

PATIENT

DRUGS (2)
  1. AFREZZA [Suspect]
     Active Substance: INSULIN HUMAN
     Indication: PRODUCT USED FOR UNKNOWN INDICATION
  2. AFREZZA [Suspect]
     Active Substance: INSULIN HUMAN

REACTIONS (4)
  - Blood glucose increased [Unknown]
  - Accidental overdose [Unknown]
  - Blood glucose decreased [Unknown]
  - Product colour issue [Unknown]

NARRATIVE: CASE EVENT DATE: 20201029
